FAERS Safety Report 11086437 (Version 2)
Quarter: 2015Q2

REPORT INFORMATION
  Report Type: Spontaneous
  Country: IT (occurrence: IT)
  Receive Date: 20150504
  Receipt Date: 20150514
  Transmission Date: 20150821
  Serious: Yes (Hospitalization, Other)
  Sender: FDA-Public Use
  Company Number: IT-009507513-1504ITA023915

PATIENT
  Age: 68 Year
  Sex: Female
  Weight: 75 kg

DRUGS (11)
  1. DASABUVIR [Suspect]
     Active Substance: DASABUVIR
     Indication: CHRONIC HEPATITIS C
     Dosage: UNK
     Dates: start: 20150309
  2. PANTORC [Concomitant]
     Active Substance: PANTOPRAZOLE SODIUM
     Dosage: UNK
     Dates: start: 20141101
  3. ABT-450 [Suspect]
     Active Substance: VERUPREVIR
     Indication: CHRONIC HEPATITIS C
     Dosage: UNK
     Dates: start: 20150309
  4. KANRENOL [Concomitant]
     Active Substance: CANRENOATE POTASSIUM
     Dosage: UNK
     Route: 048
     Dates: start: 20141101
  5. KONAKION [Concomitant]
     Active Substance: PHYTONADIONE
     Dosage: UNK
     Dates: start: 20141101
  6. RITONAVIR. [Suspect]
     Active Substance: RITONAVIR
     Indication: CHRONIC HEPATITIS C
     Dosage: 100 MG, DAILY
     Route: 048
     Dates: start: 20150309
  7. INDERAL [Concomitant]
     Active Substance: PROPRANOLOL HYDROCHLORIDE
     Dosage: UNK
     Dates: start: 20141101
  8. REBETOL [Suspect]
     Active Substance: RIBAVIRIN
     Indication: CHRONIC HEPATITIS C
     Dosage: 1000 MG, DAILY
     Route: 048
     Dates: start: 20150309
  9. OMBITASVIR [Suspect]
     Active Substance: OMBITASVIR
     Indication: CHRONIC HEPATITIS C
     Dosage: UNK
     Dates: start: 20150309
  10. LASIX [Concomitant]
     Active Substance: FUROSEMIDE
     Dosage: UNK
     Route: 048
     Dates: start: 20141101
  11. NORMIX [Concomitant]
     Active Substance: RIFAXIMIN
     Dosage: UNK
     Route: 048
     Dates: start: 20141101

REACTIONS (5)
  - Disorientation [Recovering/Resolving]
  - Hepatic encephalopathy [Recovering/Resolving]
  - Confusional state [Recovering/Resolving]
  - Somnolence [Recovering/Resolving]
  - Lethargy [Recovering/Resolving]

NARRATIVE: CASE EVENT DATE: 20150403
